FAERS Safety Report 25030945 (Version 1)
Quarter: 2025Q1

REPORT INFORMATION
  Report Type: Spontaneous
  Country: US (occurrence: US)
  Receive Date: 20250303
  Receipt Date: 20250303
  Transmission Date: 20250409
  Serious: No
  Sender: Haleon PLC
  Company Number: US-HALEON-2228639

PATIENT
  Sex: Female

DRUGS (1)
  1. THERAFLU SEVERE COLD RELIEF CHEST CONGESTION DAYTIME [Suspect]
     Active Substance: ACETAMINOPHEN\DEXTROMETHORPHAN HYDROBROMIDE\GUAIFENESIN
     Indication: Product used for unknown indication
     Dates: start: 20250214, end: 20250214

REACTIONS (3)
  - Urticaria [Recovered/Resolved]
  - Drug hypersensitivity [Unknown]
  - Incorrect dose administered [Unknown]

NARRATIVE: CASE EVENT DATE: 20250214
